FAERS Safety Report 19175219 (Version 2)
Quarter: 2021Q2

REPORT INFORMATION
  Report Type: Spontaneous
  Country: PL (occurrence: PL)
  Receive Date: 20210424
  Receipt Date: 20210504
  Transmission Date: 20210717
  Serious: Yes (Other)
  Sender: FDA-Public Use
  Company Number: PL-ROCHE-2816844

PATIENT
  Weight: 75 kg

DRUGS (5)
  1. PLASMA [Concomitant]
     Active Substance: HUMAN PLASMA
     Dosage: 50 BU?ITI PLASMA DERIVED FACTOR VIII CONCENTRATE 150 IU/KG 1 X DAILY + FEIBA?50?75 MG/KG EVERY OTHER
     Dates: start: 20071022
  2. MABTHERA [Suspect]
     Active Substance: RITUXIMAB
     Indication: FACTOR VIII DEFICIENCY
     Dosage: ON 12/NOV/2009, 19/NOV/2009 AND 26/NOV/2009 DOSE TAKEN?ON 17/DEC/2010, SHE RECEIVED THE BOOSTER DOSE
     Route: 065
     Dates: start: 20091105
  3. FACTOR VIII [Concomitant]
     Active Substance: ANTIHEMOPHILIC FACTOR HUMAN
     Indication: FACTOR VIII DEFICIENCY
  4. PLASMA [Concomitant]
     Active Substance: HUMAN PLASMA
     Dates: start: 200711
  5. PLASMA [Concomitant]
     Active Substance: HUMAN PLASMA
     Dosage: 500 BU
     Dates: start: 20061124

REACTIONS (14)
  - Bone deformity [Unknown]
  - Laboratory test abnormal [Unknown]
  - Muscle atrophy [Unknown]
  - Osteoporosis [Unknown]
  - Bone development abnormal [Unknown]
  - Arthropathy [Unknown]
  - Musculoskeletal stiffness [Unknown]
  - Osteosclerosis [Unknown]
  - Foot deformity [Unknown]
  - Joint space narrowing [Unknown]
  - Joint destruction [Unknown]
  - Vascular device infection [Unknown]
  - Joint range of motion decreased [Unknown]
  - Joint contracture [Unknown]

NARRATIVE: CASE EVENT DATE: 201709
